FAERS Safety Report 14282671 (Version 2)
Quarter: 2018Q1

REPORT INFORMATION
  Report Type: Spontaneous
  Country: JP (occurrence: JP)
  Receive Date: 20171213
  Receipt Date: 20180206
  Transmission Date: 20180508
  Serious: Yes (Death, Hospitalization, Other)
  Sender: FDA-Public Use
  Company Number: JP-SA-2017SA247470

PATIENT
  Age: 74 Year
  Sex: Male

DRUGS (1)
  1. FLUDARA [Suspect]
     Active Substance: FLUDARABINE PHOSPHATE
     Indication: LYMPHOMA
     Route: 065

REACTIONS (4)
  - Agranulocytosis [Unknown]
  - Pneumonia [Unknown]
  - Autoimmune neutropenia [Unknown]
  - Multiple organ dysfunction syndrome [Fatal]
